FAERS Safety Report 6888155-0 (Version None)
Quarter: 2010Q3

REPORT INFORMATION
  Report Type: 
  Country: None (occurrence: None)
  Receive Date: 20100730
  Receipt Date: 20100722
  Transmission Date: 20110219
  Serious: Yes (Life-Threatening)
  Sender: FDA-Public Use
  Company Number: CH-MERCK-1007USA02549

PATIENT
  Age: 63 Year
  Sex: Female

DRUGS (8)
  1. EMEND [Suspect]
     Indication: PROPHYLAXIS OF NAUSEA AND VOMITING
     Route: 048
     Dates: start: 20100119, end: 20100119
  2. EMEND [Suspect]
     Route: 048
     Dates: start: 20100120, end: 20100121
  3. RIBOMUSTIN [Suspect]
     Indication: B-CELL LYMPHOMA
     Route: 042
     Dates: start: 20100119, end: 20100120
  4. MABTHERA [Suspect]
     Indication: B-CELL LYMPHOMA
     Route: 042
     Dates: start: 20100119, end: 20100119
  5. PONSTAN [Suspect]
     Indication: PAIN IN EXTREMITY
     Route: 048
     Dates: start: 20100101, end: 20100201
  6. PASPERTIN [Suspect]
     Indication: PROPHYLAXIS OF NAUSEA AND VOMITING
     Route: 048
     Dates: start: 20100101, end: 20100201
  7. NAVOBAN [Concomitant]
     Route: 065
     Dates: start: 20100119, end: 20100120
  8. FORTECORTIN [Concomitant]
     Route: 065
     Dates: start: 20100119, end: 20100120

REACTIONS (1)
  - AGRANULOCYTOSIS [None]
